FAERS Safety Report 7027187-9 (Version None)
Quarter: 2010Q4

REPORT INFORMATION
  Report Type: 
  Country: None (occurrence: None)
  Receive Date: 20101004
  Receipt Date: 20100922
  Transmission Date: 20110411
  Serious: No
  Sender: FDA-Public Use
  Company Number: US-PFIZER INC-2010090557

PATIENT
  Age: 38 Year
  Sex: Female

DRUGS (1)
  1. XANAX [Suspect]
     Dosage: UNK
     Dates: start: 20100201, end: 20100304

REACTIONS (1)
  - TELANGIECTASIA [None]
